FAERS Safety Report 13126079 (Version 1)
Quarter: 2017Q1

REPORT INFORMATION
  Report Type: Spontaneous
  Country: US (occurrence: US)
  Receive Date: 20170118
  Receipt Date: 20170118
  Transmission Date: 20170428
  Serious: Yes (Other)
  Sender: FDA-Public Use
  Company Number: US-GUERBET LLC-1062119

PATIENT
  Age: 52 Year
  Sex: Female

DRUGS (1)
  1. CONRAY 30 [Suspect]
     Active Substance: IOTHALAMATE MEGLUMINE
     Indication: NUCLEAR MAGNETIC RESONANCE IMAGING
     Dates: start: 20161229, end: 20161229

REACTIONS (4)
  - Nausea [Recovered/Resolved]
  - Pharyngeal oedema [Recovered/Resolved]
  - Dizziness [Recovered/Resolved]
  - Vomiting [Recovered/Resolved]

NARRATIVE: CASE EVENT DATE: 20161229
